FAERS Safety Report 15904113 (Version 1)
Quarter: 2019Q1

REPORT INFORMATION
  Report Type: Spontaneous
  Country: US (occurrence: US)
  Receive Date: 20190204
  Receipt Date: 20190204
  Transmission Date: 20190417
  Serious: No
  Sender: FDA-Public Use
  Company Number: US-AUROBINDO-AUR-APL-2018-035104

PATIENT
  Sex: Female
  Weight: 36.28 kg

DRUGS (1)
  1. CEFDINIR FOR ORAL SUSPENSION 125 MG/5 ML [Suspect]
     Active Substance: CEFDINIR
     Indication: EAR INFECTION
     Dosage: UNK UNK, TWO TIMES A DAY
     Route: 048

REACTIONS (4)
  - Product storage error [Unknown]
  - No adverse event [Unknown]
  - Product gel formation [Unknown]
  - Product odour abnormal [Unknown]
